FAERS Safety Report 18272372 (Version 3)
Quarter: 2022Q1

REPORT INFORMATION
  Report Type: Report from Study
  Country: KR (occurrence: KR)
  Receive Date: 20200916
  Receipt Date: 20220314
  Transmission Date: 20220424
  Serious: Yes (Hospitalization)
  Sender: FDA-Public Use
  Company Number: KR-JNJFOC-20200818991

PATIENT
  Age: 53 Year
  Sex: Male
  Weight: 70 kg

DRUGS (16)
  1. ERDAFITINIB [Suspect]
     Active Substance: ERDAFITINIB
     Indication: Neoplasm
     Dosage: MED KIT NUMBER 302-6964, 964-0106, 474-7294
     Route: 048
     Dates: start: 20200724, end: 20200831
  2. KEPPRA [Concomitant]
     Active Substance: LEVETIRACETAM
     Indication: Seizure prophylaxis
     Dates: start: 20200220, end: 20200823
  3. MAGNESIUM OXIDE [Concomitant]
     Active Substance: MAGNESIUM OXIDE
     Indication: Constipation prophylaxis
     Dates: start: 20200715, end: 20200801
  4. TRENTAL [Concomitant]
     Active Substance: PENTOXIFYLLINE
     Indication: Radiation necrosis
     Dates: start: 20200122, end: 20200827
  5. WELLTAMIN [Concomitant]
     Indication: Radiation necrosis
     Dates: start: 20200122, end: 20200811
  6. LAFUTIDINE [Concomitant]
     Active Substance: LAFUTIDINE
     Indication: Prophylaxis against gastrointestinal ulcer
     Dates: start: 20200727
  7. ACETAMINOPHEN [Concomitant]
     Active Substance: ACETAMINOPHEN
     Indication: Headache
     Dates: start: 20200803, end: 20200803
  8. ACETAMINOPHEN [Concomitant]
     Active Substance: ACETAMINOPHEN
     Dates: start: 20200807, end: 20200807
  9. ACETAMINOPHEN [Concomitant]
     Active Substance: ACETAMINOPHEN
     Dates: start: 20200813, end: 20200813
  10. PREDNISOLONE [Concomitant]
     Active Substance: PREDNISOLONE
     Indication: Brain oedema
     Dates: start: 20200727, end: 20200811
  11. METOCLOPRAMIDE HYDROCHLORIDE [Concomitant]
     Active Substance: METOCLOPRAMIDE HYDROCHLORIDE
     Indication: Vomiting
     Dates: start: 20200810, end: 20200812
  12. METOCLOPRAMIDE HYDROCHLORIDE [Concomitant]
     Active Substance: METOCLOPRAMIDE HYDROCHLORIDE
     Dates: start: 20200812, end: 20200812
  13. METOCLOPRAMIDE HYDROCHLORIDE [Concomitant]
     Active Substance: METOCLOPRAMIDE HYDROCHLORIDE
     Route: 042
     Dates: start: 20200816, end: 20200816
  14. METOCLOPRAMIDE HYDROCHLORIDE [Concomitant]
     Active Substance: METOCLOPRAMIDE HYDROCHLORIDE
     Route: 042
     Dates: start: 20200822, end: 20200826
  15. PILOGEN [Concomitant]
     Indication: Prophylaxis
     Dates: start: 20200807, end: 20200811
  16. SMECTA                             /07327601/ [Concomitant]
     Indication: Diarrhoea
     Dates: start: 20200807, end: 20200808

REACTIONS (3)
  - Vomiting [Recovered/Resolved]
  - Headache [Recovered/Resolved]
  - Muscular weakness [Not Recovered/Not Resolved]

NARRATIVE: CASE EVENT DATE: 20200812
